FAERS Safety Report 9697807 (Version 1)
Quarter: 2013Q4

REPORT INFORMATION
  Report Type: Spontaneous
  Country: US (occurrence: US)
  Receive Date: 20131120
  Receipt Date: 20131120
  Transmission Date: 20140711
  Serious: No
  Sender: FDA-Public Use
  Company Number: US-PFIZER INC-2013330233

PATIENT
  Sex: Male

DRUGS (2)
  1. CELEBREX [Suspect]
     Dosage: 200 MG, 1X/DAY
  2. AMLODIPINE BESILATE [Suspect]
     Indication: HYPERTENSION
     Dosage: 5 MG, UNK

REACTIONS (1)
  - Blood pressure increased [Unknown]
